FAERS Safety Report 11922998 (Version 1)
Quarter: 2016Q1

REPORT INFORMATION
  Report Type: Spontaneous
  Country: US (occurrence: US)
  Receive Date: 20160117
  Receipt Date: 20160117
  Transmission Date: 20160526
  Serious: Yes (Hospitalization, Other)
  Sender: FDA-Public Use
  Company Number: US-ZYDUS-009977

PATIENT
  Age: 27 Year
  Sex: Female

DRUGS (2)
  1. RIBAVIRIN. [Suspect]
     Active Substance: RIBAVIRIN
     Indication: CHRONIC HEPATITIS C
     Dosage: 1 G PER DAY
  2. PEGYLATED INTERFERON NOS [Suspect]
     Active Substance: PEGINTERFERON ALFA-2A OR PEGINTERFERON ALFA-2B OR PEGINTERFERON BETA-1A OR PEGINTERFERON LAMBDA-1A
     Indication: CHRONIC HEPATITIS C
     Dosage: 180 MICROGRAMS PER WEEKLY

REACTIONS (7)
  - Wheezing [Unknown]
  - Drug specific antibody present [Recovered/Resolved]
  - Dyspnoea [Unknown]
  - Polymenorrhoea [Recovered/Resolved]
  - Anaphylactic reaction [Unknown]
  - Arthralgia [Unknown]
  - Contusion [Recovered/Resolved]
